FAERS Safety Report 4366930-4 (Version None)
Quarter: 2004Q2

REPORT INFORMATION
  Report Type: 
  Country: None (occurrence: None)
  Receive Date: 20040527
  Receipt Date: 20040527
  Transmission Date: 20050107
  Serious: Yes (Life-Threatening)
  Sender: FDA-Public Use
  Company Number: None

PATIENT
  Age: 44 Year
  Sex: Female
  Weight: 72.5755 kg

DRUGS (2)
  1. CAPTOPRIL [Suspect]
     Indication: MALIGNANT RENAL HYPERTENSION
     Dosage: 1 PILL ONCE A DAY ORAL
     Route: 048
     Dates: start: 20040210, end: 20040325
  2. CAPTOPRIL [Suspect]
     Indication: SCLERODERMA
     Dosage: 1 PILL ONCE A DAY ORAL
     Route: 048
     Dates: start: 20040210, end: 20040325

REACTIONS (2)
  - BLOOD PRESSURE INCREASED [None]
  - PHARMACEUTICAL PRODUCT COMPLAINT [None]
